FAERS Safety Report 15523422 (Version 1)
Quarter: 2018Q4

REPORT INFORMATION
  Report Type: Spontaneous
  Country: MY (occurrence: MY)
  Receive Date: 20181018
  Receipt Date: 20181018
  Transmission Date: 20190205
  Serious: Yes (Hospitalization)
  Sender: FDA-Public Use
  Company Number: PHBS2006MY13760

PATIENT
  Age: 19 Year
  Sex: Female
  Weight: 47 kg

DRUGS (1)
  1. CARBAMAZEPINE. [Suspect]
     Active Substance: CARBAMAZEPINE
     Indication: PRODUCT USED FOR UNKNOWN INDICATION
     Dosage: 30 TAB OF CARBAMAZEPINE 200MG, ONCE/SINGLE (6,000 MG)
     Route: 048

REACTIONS (10)
  - Generalised tonic-clonic seizure [Recovered/Resolved]
  - Respiratory rate increased [Recovered/Resolved]
  - Blood urea decreased [Recovered/Resolved]
  - Toxicity to various agents [Recovered/Resolved]
  - Pyrexia [Recovered/Resolved]
  - Intentional overdose [Unknown]
  - Blood pressure decreased [Recovered/Resolved]
  - Coma scale abnormal [Recovered/Resolved]
  - Heart rate increased [Recovered/Resolved]
  - Anticonvulsant drug level increased [Recovered/Resolved]
